FAERS Safety Report 17553483 (Version 1)
Quarter: 2020Q1

REPORT INFORMATION
  Report Type: Spontaneous
  Country: FR (occurrence: FR)
  Receive Date: 20200317
  Receipt Date: 20200317
  Transmission Date: 20200409
  Serious: Yes (Hospitalization, Other)
  Sender: FDA-Public Use
  Company Number: FR-VALIDUS PHARMACEUTICALS LLC-FR-2020VAL000198

PATIENT

DRUGS (11)
  1. FUROSEMIDE. [Suspect]
     Active Substance: FUROSEMIDE
     Indication: CARDIAC FAILURE
     Dosage: 250 MG, QD
     Route: 002
     Dates: start: 20140130
  2. BISOPROLOL [Suspect]
     Active Substance: BISOPROLOL
     Dosage: 5 MG, BID
     Route: 002
     Dates: start: 20191113
  3. COUMADINE [Concomitant]
     Active Substance: WARFARIN SODIUM
     Indication: ATRIAL FIBRILLATION
     Dosage: UNK
     Dates: start: 20130211
  4. CETIRIZIN [Concomitant]
     Active Substance: CETIRIZINE HYDROCHLORIDE
     Indication: PRURITUS
     Dosage: UNK
     Dates: start: 20190822
  5. TAFAMIDIS [Suspect]
     Active Substance: TAFAMIDIS MEGLUMINE
     Indication: CARDIAC AMYLOIDOSIS
     Dosage: 61 MG, QD
     Route: 048
     Dates: start: 20191017
  6. ALFUZOSINE                         /00975301/ [Concomitant]
     Active Substance: ALFUZOSIN
     Indication: PROSTATIC ADENOMA
     Dosage: UNK
     Dates: start: 20190822
  7. FUROSEMIDE. [Suspect]
     Active Substance: FUROSEMIDE
     Dosage: 80 MG, QD, 2 PILL PER DAY
     Route: 002
     Dates: start: 20191013
  8. FUROSEMIDE. [Suspect]
     Active Substance: FUROSEMIDE
     Dosage: 500 MG, QD
     Route: 042
     Dates: start: 20191013
  9. BISOPROLOL [Suspect]
     Active Substance: BISOPROLOL
     Indication: ATRIAL FIBRILLATION
     Dosage: 1.25 MG, QD
     Route: 002
     Dates: start: 20130211
  10. BISOPROLOL [Suspect]
     Active Substance: BISOPROLOL
     Dosage: 10 MG, BID
     Route: 002
     Dates: start: 20191113
  11. ALLOPURINOL. [Concomitant]
     Active Substance: ALLOPURINOL
     Indication: GOUT
     Dosage: UNK
     Dates: start: 20150127

REACTIONS (9)
  - Rales [Recovered/Resolved with Sequelae]
  - Atrial fibrillation [Recovered/Resolved with Sequelae]
  - Cough [Recovered/Resolved with Sequelae]
  - Parainfluenzae virus infection [Recovered/Resolved with Sequelae]
  - Weight increased [Recovered/Resolved with Sequelae]
  - Cardiac failure [Recovered/Resolved with Sequelae]
  - Dyspnoea [Recovered/Resolved with Sequelae]
  - Oedema peripheral [Recovered/Resolved with Sequelae]
  - Tachycardia [Recovered/Resolved with Sequelae]

NARRATIVE: CASE EVENT DATE: 20191031
